FAERS Safety Report 10178052 (Version 8)
Quarter: 2015Q1

REPORT INFORMATION
  Report Type: Report from Study
  Country: CA (occurrence: CA)
  Receive Date: 20140518
  Receipt Date: 20150128
  Transmission Date: 20150720
  Serious: Yes (Hospitalization)
  Sender: FDA-Public Use
  Company Number: CA-ROCHE-1397150

PATIENT
  Age: 32 Year
  Sex: Male

DRUGS (6)
  1. DOXORUBICIN [Suspect]
     Active Substance: DOXORUBICIN
     Indication: DIFFUSE LARGE B-CELL LYMPHOMA
     Dosage: MOST RECENT DOSE PRIOR TO ONSET OF FEBRILE NEUTROPENIA: 10/APR/2014 - (113 MG)
     Route: 042
     Dates: start: 20140225
  2. OBINUTUZUMAB [Suspect]
     Active Substance: OBINUTUZUMAB
     Indication: DIFFUSE LARGE B-CELL LYMPHOMA
     Dosage: MOST RECENT DOSE PRIOR TO ONSET OF FEBRILE NEUTROPENIA: 10/APR/2014 - (VOLUME TAKEN- 280 ML, DOSE CO
     Route: 042
     Dates: start: 20140224
  3. CYCLOPHOSPHAMIDE. [Suspect]
     Active Substance: CYCLOPHOSPHAMIDE
     Indication: DIFFUSE LARGE B-CELL LYMPHOMA
     Dosage: MOST RECENT DOSE PRIOR TO ONSET OF FEBRILE NEUTROPENIA: 10/APR/2014 - (1697 MG)
     Route: 042
     Dates: start: 20140225
  4. VINCRISTINE [Suspect]
     Active Substance: VINCRISTINE
     Indication: DIFFUSE LARGE B-CELL LYMPHOMA
     Dosage: MOST RECENT DOSE PRIOR TO ONSET OF FEBRILE NEUTROPENIA: 10/APR/2014 - (2 MG)
     Route: 040
     Dates: start: 20140225
  5. PREDNISONE. [Suspect]
     Active Substance: PREDNISONE
     Indication: DIFFUSE LARGE B-CELL LYMPHOMA
     Dosage: MOST RECENT DOSE PRIOR TO ONSET OF FEBRILE NEUTROPENIA: 10/APR/2014 - (100 MG)
     Route: 048
     Dates: start: 20140224
  6. NEUPOGEN [Concomitant]
     Active Substance: FILGRASTIM
     Indication: PROPHYLAXIS
     Route: 065
     Dates: start: 20140407

REACTIONS (1)
  - Febrile neutropenia [Recovered/Resolved]

NARRATIVE: CASE EVENT DATE: 20140504
